FAERS Safety Report 9306323 (Version 1)
Quarter: 2013Q2

REPORT INFORMATION
  Report Type: Spontaneous
  Country: CZ (occurrence: CZ)
  Receive Date: 20130523
  Receipt Date: 20130523
  Transmission Date: 20140414
  Serious: Yes (Hospitalization)
  Sender: FDA-Public Use
  Company Number: CZ-PFIZER INC-2013157641

PATIENT
  Age: 56 Year
  Sex: Female

DRUGS (1)
  1. SUNITINIB MALATE [Suspect]
     Indication: RENAL CELL CARCINOMA
     Dosage: 50 MG DAILY, CYCLIC, 28 DAYS ON, 14 DAYS OFF
     Dates: start: 200901, end: 200911

REACTIONS (4)
  - Oesophagitis [Unknown]
  - Dyspepsia [Unknown]
  - Vomiting [Unknown]
  - Abdominal pain [Unknown]
